FAERS Safety Report 4892569-8 (Version None)
Quarter: 2006Q1

REPORT INFORMATION
  Report Type: 
  Country: None (occurrence: None)
  Receive Date: 20060126
  Receipt Date: 20060120
  Transmission Date: 20060701
  Serious: Yes (Death)
  Sender: FDA-Public Use
  Company Number: PHBS2006DE01254

PATIENT
  Age: 55 Year
  Sex: Female

DRUGS (4)
  1. CYCLOSPORINE [Suspect]
     Indication: LIVER TRANSPLANT
     Route: 065
  2. THYMOGLOBULIN [Suspect]
     Indication: LIVER TRANSPLANT
     Route: 065
  3. MYCOPHENOLATE MOFETIL [Suspect]
     Indication: LIVER TRANSPLANT
     Route: 065
  4. CEFTRIAXONE [Concomitant]

REACTIONS (15)
  - ALPHA HAEMOLYTIC STREPTOCOCCAL INFECTION [None]
  - BLOOD GASES ABNORMAL [None]
  - CYTOMEGALOVIRUS TEST POSITIVE [None]
  - ENTEROBACTER PNEUMONIA [None]
  - HAEMODIALYSIS [None]
  - HEPATIC FUNCTION ABNORMAL [None]
  - INTUBATION [None]
  - LUNG DISORDER [None]
  - MUCOSAL HAEMORRHAGE [None]
  - MULTI-ORGAN FAILURE [None]
  - OEDEMA MUCOSAL [None]
  - PNEUMONIA NECROTISING [None]
  - PNEUMONIA STAPHYLOCOCCAL [None]
  - STAPHYLOCOCCAL INFECTION [None]
  - URINE OUTPUT DECREASED [None]
